FAERS Safety Report 18383814 (Version 1)
Quarter: 2020Q4

REPORT INFORMATION
  Report Type: Spontaneous
  Country: GB (occurrence: GB)
  Receive Date: 20201014
  Receipt Date: 20201014
  Transmission Date: 20210114
  Serious: Yes (Life-Threatening)
  Sender: FDA-Public Use
  Company Number: GB-MYLANLABS-2020M1086159

PATIENT
  Age: 33 Year
  Sex: Female

DRUGS (1)
  1. HYDROCORTISONE. [Suspect]
     Active Substance: HYDROCORTISONE
     Indication: ADRENAL INSUFFICIENCY
     Dosage: 100 MILLIGRAM
     Route: 042
     Dates: start: 197708

REACTIONS (4)
  - Vomiting [Recovered/Resolved]
  - Wheezing [Recovered/Resolved]
  - Urticaria papular [Recovered/Resolved]
  - Obstructive airways disorder [Recovered/Resolved]

NARRATIVE: CASE EVENT DATE: 197708
